FAERS Safety Report 18363195 (Version 3)
Quarter: 2020Q4

REPORT INFORMATION
  Report Type: Spontaneous
  Country: US (occurrence: US)
  Receive Date: 20201009
  Receipt Date: 20201201
  Transmission Date: 20210114
  Serious: Yes (Hospitalization, Other)
  Sender: FDA-Public Use
  Company Number: US-AMGEN-USASP2020161664

PATIENT
  Age: 38 Year
  Sex: Female

DRUGS (29)
  1. TRIAMCINOLONA [TRIAMCINOLONE] [Concomitant]
  2. OXYBUTYNIN. [Concomitant]
     Active Substance: OXYBUTYNIN CHLORIDE
  3. CLINDAMYCIN. [Concomitant]
     Active Substance: CLINDAMYCIN
  4. DOXEPIN [Concomitant]
     Active Substance: DOXEPIN
     Dosage: UNK
  5. KETOROLAC [Concomitant]
     Active Substance: KETOROLAC TROMETHAMINE
     Dosage: UNK
  6. NAPROXEN. [Concomitant]
     Active Substance: NAPROXEN
     Dosage: UNK
  7. DULOXETINE. [Concomitant]
     Active Substance: DULOXETINE
  8. ATENOLOL. [Concomitant]
     Active Substance: ATENOLOL
  9. CLONAZEPAM. [Concomitant]
     Active Substance: CLONAZEPAM
  10. MONTELUKAST [Concomitant]
     Active Substance: MONTELUKAST SODIUM
  11. FEXOFENADINE [Concomitant]
     Active Substance: FEXOFENADINE HYDROCHLORIDE
  12. METHOCARBAMOL. [Concomitant]
     Active Substance: METHOCARBAMOL
     Dosage: UNK
  13. OTEZLA [Suspect]
     Active Substance: APREMILAST
     Indication: PSORIATIC ARTHROPATHY
     Dosage: 30 MILLIGRAM, BID
     Route: 048
     Dates: start: 20200529
  14. DOXEPIN HCL [Concomitant]
     Active Substance: DOXEPIN HYDROCHLORIDE
  15. ATORVASTATIN [Concomitant]
     Active Substance: ATORVASTATIN
  16. PREDNISONE. [Concomitant]
     Active Substance: PREDNISONE
  17. CEPHALEXINE [Concomitant]
     Active Substance: CEPHALEXIN
  18. LIDOCAINE. [Concomitant]
     Active Substance: LIDOCAINE
  19. CHLORTHALIDON [Concomitant]
     Active Substance: CHLORTHALIDONE
     Dosage: UNK
  20. PIOGLITAZONE. [Concomitant]
     Active Substance: PIOGLITAZONE
     Dosage: UNK
  21. OLANZAPINE. [Concomitant]
     Active Substance: OLANZAPINE
  22. GABAPENTIN. [Concomitant]
     Active Substance: GABAPENTIN
  23. MUPIROCIN. [Concomitant]
     Active Substance: MUPIROCIN
  24. FENOFIBRATE. [Concomitant]
     Active Substance: FENOFIBRATE
  25. FAMOTIDINE. [Concomitant]
     Active Substance: FAMOTIDINE
  26. ARIPIPRAZOLE. [Concomitant]
     Active Substance: ARIPIPRAZOLE
  27. METHYLPHENIDATE. [Concomitant]
     Active Substance: METHYLPHENIDATE
  28. FLUCONAZOLE. [Concomitant]
     Active Substance: FLUCONAZOLE
  29. CEFDINIR. [Concomitant]
     Active Substance: CEFDINIR
     Dosage: UNK

REACTIONS (13)
  - Product dose omission issue [Unknown]
  - Psoriatic arthropathy [Not Recovered/Not Resolved]
  - Fatigue [Not Recovered/Not Resolved]
  - Dyspnoea [Not Recovered/Not Resolved]
  - Aphonia [Not Recovered/Not Resolved]
  - Insomnia [Not Recovered/Not Resolved]
  - Nausea [Not Recovered/Not Resolved]
  - Restlessness [Not Recovered/Not Resolved]
  - Headache [Not Recovered/Not Resolved]
  - Cough [Not Recovered/Not Resolved]
  - Blood glucose increased [Not Recovered/Not Resolved]
  - Weight decreased [Not Recovered/Not Resolved]
  - Vomiting [Not Recovered/Not Resolved]

NARRATIVE: CASE EVENT DATE: 2020
